FAERS Safety Report 9676502 (Version 2)
Quarter: 2013Q4

REPORT INFORMATION
  Report Type: Spontaneous
  Country: US (occurrence: US)
  Receive Date: 20131107
  Receipt Date: 20131107
  Transmission Date: 20140711
  Serious: Yes (Hospitalization)
  Sender: FDA-Public Use
  Company Number: US-B.I. PHARMACEUTICALS,INC./RIDGEFIELD-2013-BI-13752BP

PATIENT
  Age: 53 Year
  Sex: Female
  Weight: 90.72 kg

DRUGS (6)
  1. PRADAXA [Suspect]
     Indication: ANTICOAGULANT THERAPY
     Dosage: 300 MG
     Route: 048
     Dates: start: 20120319, end: 20120327
  2. PRADAXA [Suspect]
     Indication: ATRIAL FIBRILLATION
  3. LEXAPRO [Concomitant]
     Dosage: 10 MG
     Route: 048
     Dates: start: 2008
  4. LOPRESSOR [Concomitant]
     Route: 048
  5. MIRAPEX [Concomitant]
     Indication: RESTLESS LEGS SYNDROME
     Dosage: 1 MG
     Route: 048
     Dates: start: 2003
  6. CYANOCOBALAMIN [Concomitant]
     Route: 030

REACTIONS (1)
  - Lower gastrointestinal haemorrhage [Unknown]
